FAERS Safety Report 18075558 (Version 1)
Quarter: 2020Q3

REPORT INFORMATION
  Report Type: Spontaneous
  Country: BR (occurrence: BR)
  Receive Date: 20200728
  Receipt Date: 20200728
  Transmission Date: 20201103
  Serious: Yes (Hospitalization)
  Sender: FDA-Public Use
  Company Number: BR-ABBVIE-20P-020-3498250-00

PATIENT
  Sex: Female
  Weight: 80 kg

DRUGS (9)
  1. EXODUS [ESCITALOPRAM OXALATE] [Concomitant]
     Indication: ANTIDEPRESSANT THERAPY
     Dosage: DD: 20MG TAKEN IN THE MORNING
     Route: 048
  2. PIOGLITAZONE. [Concomitant]
     Active Substance: PIOGLITAZONE
     Indication: DIABETES MELLITUS
     Dosage: TAKEN IN THE MORNING
     Route: 048
  3. ATORVASTATIN [Concomitant]
     Active Substance: ATORVASTATIN
     Indication: BLOOD CHOLESTEROL ABNORMAL
     Dosage: DD: 1 TABLET TAKEN IN THE MORNING
     Route: 048
  4. BENICAR [Concomitant]
     Active Substance: OLMESARTAN MEDOXOMIL
     Indication: BLOOD PRESSURE ABNORMAL
     Dosage: TAKEN IN THE MORNING
     Route: 048
  5. SYNTHROID [Suspect]
     Active Substance: LEVOTHYROXINE SODIUM
     Indication: HORMONE REPLACEMENT THERAPY
     Dosage: INCORRECTLY DISPENSED THIS STRENGTH
     Route: 048
  6. NASONEX [Concomitant]
     Active Substance: MOMETASONE FUROATE
     Indication: RESPIRATORY DISORDER
     Dosage: AT NIGHT AND SOMETIMES IN THE MORNING
     Route: 045
  7. GLIFAGE XR [Concomitant]
     Active Substance: METFORMIN HYDROCHLORIDE
     Indication: DIABETES MELLITUS
     Dosage: DD: 1000MG; A CURVE EXAM WAS MADE AND IT WAS ABOVE OF  WHAT IT WAS SUPPOSED TO
     Route: 048
  8. FOSTAIR [Concomitant]
     Active Substance: BECLOMETHASONE\FORMOTEROL
     Indication: RESPIRATORY DISORDER
     Dosage: MORNING/NIGHT
     Route: 048
  9. SYNTHROID [Suspect]
     Active Substance: LEVOTHYROXINE SODIUM
     Dosage: TAKEN IN THE MORNING, AT FASTING
     Route: 048

REACTIONS (3)
  - Asthma [Unknown]
  - Product dispensing error [Unknown]
  - Pneumonia [Unknown]
